FAERS Safety Report 17368753 (Version 4)
Quarter: 2020Q3

REPORT INFORMATION
  Report Type: Spontaneous
  Country: US (occurrence: US)
  Receive Date: 20200204
  Receipt Date: 20200803
  Transmission Date: 20201102
  Serious: Yes (Death, Life-Threatening, Hospitalization, Other)
  Sender: FDA-Public Use
  Company Number: US-AMGEN-USASP2020016508

PATIENT

DRUGS (3)
  1. PEGFILGRASTIM [Suspect]
     Active Substance: PEGFILGRASTIM
     Indication: NEUTROPENIA
     Dosage: 6 MILLIGRAM, AFTER CHEMO (6 MG/0.6 M L)
     Route: 058
  2. DOCETAXEL. [Suspect]
     Active Substance: DOCETAXEL
     Indication: BREAST CANCER
     Dosage: 75 MILLIGRAM/SQ. METER
     Route: 065
  3. CYCLOPHOSPHAMIDE. [Suspect]
     Active Substance: CYCLOPHOSPHAMIDE
     Indication: BREAST CANCER
     Dosage: 600 MILLIGRAM/SQ. METER
     Route: 065

REACTIONS (24)
  - Dizziness [Unknown]
  - Nausea [Unknown]
  - Myalgia [Unknown]
  - Adverse event [Unknown]
  - Chronic obstructive pulmonary disease [Fatal]
  - Pain in extremity [Unknown]
  - Pyrexia [Unknown]
  - Breast cancer [Fatal]
  - Lymphopenia [Unknown]
  - White blood cell count increased [Unknown]
  - Bone pain [Unknown]
  - Arthralgia [Unknown]
  - Disease complication [Unknown]
  - Neutrophil count increased [Unknown]
  - Drug specific antibody [Unknown]
  - Rash [Unknown]
  - Back pain [Unknown]
  - Fatigue [Unknown]
  - Febrile neutropenia [Unknown]
  - Diarrhoea [Unknown]
  - Hypersensitivity [Unknown]
  - Headache [Unknown]
  - Neutropenia [Unknown]
  - Pain [Unknown]
